APPROVED DRUG PRODUCT: BICILLIN L-A
Active Ingredient: PENICILLIN G BENZATHINE
Strength: 300,000 UNITS/ML
Dosage Form/Route: INJECTABLE;INJECTION
Application: N050141 | Product #003
Applicant: KING PHARMACEUTICALS LLC
Approved: Approved Prior to Jan 1, 1982 | RLD: Yes | RS: No | Type: DISCN